FAERS Safety Report 13921348 (Version 1)
Quarter: 2017Q3

REPORT INFORMATION
  Report Type: Spontaneous
  Country: GB (occurrence: GB)
  Receive Date: 20170830
  Receipt Date: 20170830
  Transmission Date: 20171127
  Serious: Yes (Hospitalization, Other)
  Sender: FDA-Public Use
  Company Number: GB-PFIZER INC-2017370302

PATIENT
  Age: 34 Year
  Sex: Female
  Weight: 58 kg

DRUGS (6)
  1. ENSTILAR [Concomitant]
     Active Substance: BETAMETHASONE DIPROPIONATE\CALCIPOTRIENE HYDRATE
     Dosage: 1 DF, 1X/DAY (APPLY ONCE DAILY)
     Dates: start: 20170511
  2. SULFASALAZINE. [Suspect]
     Active Substance: SULFASALAZINE
     Dosage: UNK
     Dates: start: 20170811
  3. CALCIPOTRIOL [Concomitant]
     Active Substance: CALCIPOTRIENE
     Dosage: 1 DF, 1X/DAY (APPLY ONCE DAILY)
     Dates: start: 20160506
  4. AQUEOUS /00662801/ [Concomitant]
     Dosage: APPLY AS NEEDED
     Dates: start: 20150713
  5. DIPROBASE /01210201/ [Concomitant]
     Dosage: APPLY AS NEEDED 2-4 TIMES DAILY
     Dates: start: 20170517
  6. LORATADINE. [Concomitant]
     Active Substance: LORATADINE
     Dosage: 1 DF, 1X/DAY
     Dates: start: 20170727

REACTIONS (4)
  - Respiratory rate increased [Unknown]
  - Heart rate increased [Unknown]
  - Rash erythematous [Recovering/Resolving]
  - Pyrexia [Unknown]

NARRATIVE: CASE EVENT DATE: 20170811
